FAERS Safety Report 9221718 (Version 1)
Quarter: 2013Q2

REPORT INFORMATION
  Report Type: Spontaneous
  Country: GB (occurrence: None)
  Receive Date: 20130408
  Receipt Date: 20130408
  Transmission Date: 20140414
  Serious: Yes (Other)
  Sender: FDA-Public Use
  Company Number: AUR-APL-2013-02827

PATIENT
  Age: 50 Year
  Sex: Female
  Weight: 79.37 kg

DRUGS (4)
  1. FLUOXETINE (FLUOXETINE) [Suspect]
     Indication: DEPRESSION
     Dosage: 1 DOSAGE FORMS (1 DOSAGE FORMS, 1 IN 1 D), ORAL
     Route: 048
     Dates: start: 20130215
  2. OMEPRAZOLE (OMEPRAZOLE) [Concomitant]
  3. PL 04917/0021 ACIDEX SUSPENSION [Concomitant]
  4. REGURIN (TROSPIUM CHLORIDE) [Concomitant]

REACTIONS (11)
  - Dizziness [None]
  - Nausea [None]
  - Anxiety [None]
  - Feeling jittery [None]
  - Tremor [None]
  - Headache [None]
  - Tinnitus [None]
  - Decreased appetite [None]
  - Fatigue [None]
  - Asthenia [None]
  - Abnormal behaviour [None]
